FAERS Safety Report 24194283 (Version 1)
Quarter: 2024Q3

REPORT INFORMATION
  Report Type: Spontaneous
  Country: US (occurrence: None)
  Receive Date: 20240808
  Receipt Date: 20240808
  Transmission Date: 20241016
  Serious: Yes (Hospitalization)
  Sender: Public
  Company Number: None

PATIENT
  Age: 47 Year
  Sex: Male
  Weight: 83.1 kg

DRUGS (3)
  1. TIPIRACIL HYDROCHLORIDE\TRIFLURIDINE [Suspect]
     Active Substance: TIPIRACIL HYDROCHLORIDE\TRIFLURIDINE
  2. TIPIRACIL HYDROCHLORIDE\TRIFLURIDINE [Concomitant]
     Active Substance: TIPIRACIL HYDROCHLORIDE\TRIFLURIDINE
     Dates: start: 20240624, end: 20240726
  3. lchemo RT [Concomitant]
     Dates: start: 20240724, end: 20240730

REACTIONS (4)
  - Subcutaneous abscess [None]
  - Abscess limb [None]
  - Abscess limb [None]
  - Skin infection [None]

NARRATIVE: CASE EVENT DATE: 20240807
